FAERS Safety Report 15823091 (Version 2)
Quarter: 2019Q1

REPORT INFORMATION
  Report Type: Spontaneous
  Country: US (occurrence: US)
  Receive Date: 20190114
  Receipt Date: 20190315
  Transmission Date: 20190417
  Serious: Yes (Other)
  Sender: FDA-Public Use
  Company Number: US-REGENERON PHARMACEUTICALS, INC.-2019-10605

PATIENT

DRUGS (2)
  1. EYLEA [Suspect]
     Active Substance: AFLIBERCEPT
     Indication: EYE SWELLING
     Dosage: ONCE A MONTH IN RIGHT EYE
     Route: 031
     Dates: start: 20181207
  2. EYLEA [Suspect]
     Active Substance: AFLIBERCEPT
     Dosage: ONCE A MONTH IN LEFT EYE
     Route: 031
     Dates: start: 20181214

REACTIONS (5)
  - Visual impairment [Unknown]
  - Drug hypersensitivity [Unknown]
  - Eye disorder [Unknown]
  - Off label use [Unknown]
  - Blood glucose increased [Recovered/Resolved]

NARRATIVE: CASE EVENT DATE: 201812
